FAERS Safety Report 8264990-1 (Version None)
Quarter: 2012Q2

REPORT INFORMATION
  Report Type: 
  Country: None (occurrence: None)
  Receive Date: 20120406
  Receipt Date: 20120329
  Transmission Date: 20120825
  Serious: Yes (Hospitalization)
  Sender: FDA-Public Use
  Company Number: US-ELI_LILLY_AND_COMPANY-US201203002172

PATIENT
  Sex: Female
  Weight: 56.6 kg

DRUGS (14)
  1. PEMETREXED [Suspect]
     Indication: HEAD AND NECK CANCER
     Dosage: 500 MG/M2, DAY 1 EVERY 21 DAYS
     Route: 042
     Dates: start: 20120130, end: 20120312
  2. PEMETREXED [Suspect]
     Dosage: 375 MG/M2, EVERY 21 DAYS
     Dates: start: 20120326
  3. CETUXIMAB [Suspect]
     Indication: HEAD AND NECK CANCER
     Dosage: 400 MG/M2, LOADING DOSE DAY 1 EVERY 21 DAYS
     Route: 042
     Dates: start: 20120130, end: 20120312
  4. CARBOPLATIN [Suspect]
     Dosage: 3.75 AUC, EVERY 21 DAYS
     Dates: start: 20120326
  5. FOLIC ACID [Concomitant]
     Dosage: UNK
     Dates: start: 20120113
  6. PLATELETS [Concomitant]
     Indication: PLATELET COUNT DECREASED
     Dosage: 1 U, SINGLE
     Dates: start: 20120308, end: 20120308
  7. CARBOPLATIN [Suspect]
     Indication: HEAD AND NECK CANCER
     Dosage: 75 MG/M2, DAY 1 EVERY 21 DAYS
     Dates: start: 20120130, end: 20120312
  8. VENTOLIN                                /SCH/ [Concomitant]
     Indication: PROPHYLAXIS
     Dosage: UNK
     Route: 055
     Dates: start: 20110616
  9. VITAMIN B-12 [Concomitant]
     Dosage: UNK
     Dates: start: 20120113
  10. ADVAIR HFA [Concomitant]
     Indication: PROPHYLAXIS
     Dosage: UNK
     Dates: start: 20110616
  11. CETUXIMAB [Suspect]
     Dosage: 400 MG/M2, EVERY 21 DAYS
     Dates: start: 20120326
  12. PANTENOL [Concomitant]
     Indication: PROPHYLAXIS
     Dosage: UNK
     Dates: start: 20110616
  13. ENSURE                             /06184901/ [Concomitant]
     Indication: MEDICAL DIET
     Dosage: UNK
     Dates: start: 20120118
  14. MIRALAX [Concomitant]
     Indication: CONSTIPATION
     Dosage: UNK
     Dates: start: 20120220

REACTIONS (7)
  - CHEST PAIN [None]
  - MUSCULAR WEAKNESS [None]
  - NEUTROPHIL COUNT DECREASED [None]
  - ANAEMIA [None]
  - SOFT TISSUE INFECTION [None]
  - DYSPNOEA [None]
  - PLATELET COUNT DECREASED [None]
